FAERS Safety Report 7242738-7 (Version None)
Quarter: 2011Q1

REPORT INFORMATION
  Report Type: 
  Country: None (occurrence: None)
  Receive Date: 20110125
  Receipt Date: 20110117
  Transmission Date: 20110831
  Serious: Yes (Hospitalization)
  Sender: FDA-Public Use
  Company Number: US-ASTELLAS-2011US000227

PATIENT

DRUGS (2)
  1. VIBATIV [Suspect]
     Indication: PRODUCT USED FOR UNKNOWN INDICATION
     Dosage: 750 MG, UNKNOWN/D
     Route: 065
  2. VIBATIV [Suspect]
     Dosage: 750 MG, UNKNOWN/D
     Route: 065

REACTIONS (4)
  - ELECTROCARDIOGRAM T WAVE INVERSION [None]
  - TREMOR [None]
  - NAUSEA [None]
  - PYREXIA [None]
